FAERS Safety Report 9369505 (Version 1)
Quarter: 2013Q2

REPORT INFORMATION
  Report Type: Spontaneous
  Country: NL (occurrence: None)
  Receive Date: 20130621
  Receipt Date: 20130621
  Transmission Date: 20140414
  Serious: Yes (Hospitalization)
  Sender: FDA-Public Use
  Company Number: NL-023482

PATIENT
  Age: 69 Year
  Sex: Female
  Weight: 74 kg

DRUGS (13)
  1. CHLORAMBUCIL [Suspect]
     Indication: B-CELL LYMPHOMA
     Dosage: 16 MILLIGRAM (16 MILLIGRAM, 1 IN 1 D)
     Dates: start: 20110506, end: 20110514
  2. RITUXIMAB [Suspect]
     Indication: B-CELL LYMPHOMA
     Dates: start: 20110506, end: 20110514
  3. PERINDOPRIL [Concomitant]
  4. SPIRONOLACTONE [Concomitant]
  5. BUMETANIDE [Concomitant]
  6. CARVEDILOL [Concomitant]
  7. AMLODIPINE [Concomitant]
  8. PARIET [Concomitant]
  9. MOVICOLON [Concomitant]
  10. SINEMET [Concomitant]
  11. AMANTADINE HYDROCHLORIDE [Concomitant]
  12. PARACETAMOL [Concomitant]
  13. INHIBIN [Concomitant]

REACTIONS (5)
  - Cerebellar ataxia [None]
  - Extensor plantar response [None]
  - Myoclonus [None]
  - Nausea [None]
  - Vomiting [None]
